FAERS Safety Report 9266941 (Version 2)
Quarter: 2013Q2

REPORT INFORMATION
  Report Type: Spontaneous
  Country: US (occurrence: US)
  Receive Date: 20130502
  Receipt Date: 20130606
  Transmission Date: 20140414
  Serious: No
  Sender: FDA-Public Use
  Company Number: US-PFIZER INC-2013131773

PATIENT
  Age: 53 Year
  Sex: Female
  Weight: 68.93 kg

DRUGS (2)
  1. ADVIL [Suspect]
     Indication: TOOTHACHE
     Dosage: 200 MG, ONCE
     Route: 048
     Dates: start: 20130424, end: 20130424
  2. TYLENOL [Concomitant]
     Dosage: UNK

REACTIONS (4)
  - Poor quality drug administered [Unknown]
  - Oral discomfort [Recovered/Resolved]
  - Glossodynia [Recovered/Resolved]
  - Capsule physical issue [Recovered/Resolved]
